FAERS Safety Report 9958630 (Version 1)
Quarter: 2014Q1

REPORT INFORMATION
  Report Type: Report from Study
  Country: US (occurrence: US)
  Receive Date: 20140305
  Receipt Date: 20140305
  Transmission Date: 20141002
  Serious: Yes (Other)
  Sender: FDA-Public Use
  Company Number: US-ROCHE-1345792

PATIENT
  Sex: Male

DRUGS (9)
  1. LUCENTIS [Suspect]
     Indication: DIABETIC RETINOPATHY
     Route: 050
     Dates: start: 20110722
  2. LUCENTIS [Suspect]
     Indication: MACULAR OEDEMA
  3. AVASTIN [Suspect]
     Indication: PRODUCT USED FOR UNKNOWN INDICATION
     Route: 065
  4. PHENYLEPHRINE [Concomitant]
     Route: 065
  5. MYDRIACYL [Concomitant]
     Route: 065
  6. CARBOXYMETHYLCELLULOSE SODIUM [Concomitant]
  7. FLUOROMETHOLONE [Concomitant]
     Route: 065
  8. TIMOLOL [Concomitant]
     Route: 065
  9. THERA TEARS [Concomitant]

REACTIONS (15)
  - Punctate keratitis [Unknown]
  - Retinal oedema [Unknown]
  - Ulcerative keratitis [Unknown]
  - Eye pain [Unknown]
  - Cataract nuclear [Unknown]
  - Corneal neovascularisation [Unknown]
  - Macular scar [Unknown]
  - Retinal exudates [Unknown]
  - Retinal haemorrhage [Unknown]
  - Intraocular pressure increased [Unknown]
  - Cataract [Unknown]
  - Pupillary reflex impaired [Unknown]
  - Photopsia [Unknown]
  - Visual field defect [Unknown]
  - Macular ischaemia [Unknown]
